FAERS Safety Report 14485625 (Version 3)
Quarter: 2019Q2

REPORT INFORMATION
  Report Type: Spontaneous
  Country: US (occurrence: US)
  Receive Date: 20180205
  Receipt Date: 20190510
  Transmission Date: 20190711
  Serious: Yes (Other)
  Sender: FDA-Public Use
  Company Number: US-PFIZER INC-2018044384

PATIENT
  Age: 65 Year

DRUGS (1)
  1. ESTROGENS CONJUGATED [Suspect]
     Active Substance: ESTROGENS, CONJUGATED
     Indication: TRANSGENDER HORMONAL THERAPY
     Dosage: 2.5 MG, DAILY (2.5 MG/DAY; 13 YEARS)
     Route: 048

REACTIONS (3)
  - Off label use [Unknown]
  - Invasive ductal breast carcinoma [Unknown]
  - Product use in unapproved indication [Unknown]
